FAERS Safety Report 7320146-8 (Version None)
Quarter: 2011Q1

REPORT INFORMATION
  Report Type: 
  Country: None (occurrence: None)
  Receive Date: 20110223
  Receipt Date: 20110223
  Transmission Date: 20110831
  Serious: No
  Sender: FDA-Public Use
  Company Number: None

PATIENT
  Sex: Male

DRUGS (1)
  1. TEGRETOL-XR [Suspect]
     Indication: CONVULSION
     Dosage: 600 MG QHS PO
     Route: 048
     Dates: end: 20041001

REACTIONS (3)
  - THERAPEUTIC RESPONSE DECREASED [None]
  - CONVULSION [None]
  - CONDITION AGGRAVATED [None]
